FAERS Safety Report 20349298 (Version 2)
Quarter: 2022Q1

REPORT INFORMATION
  Report Type: Other
  Country: US (occurrence: US)
  Receive Date: 20220119
  Receipt Date: 20220304
  Transmission Date: 20220423
  Serious: No
  Sender: FDA-Public Use
  Company Number: US-NEUROCRINE BIOSCIENCES INC.-2022NBI00218

PATIENT

DRUGS (5)
  1. INGREZZA [Suspect]
     Active Substance: VALBENAZINE
     Indication: Tardive dyskinesia
     Dosage: 40 MILLIGRAM, QD
     Route: 048
     Dates: end: 20220113
  2. INGREZZA [Suspect]
     Active Substance: VALBENAZINE
     Dosage: 40 MILLIGRAM, QD
     Route: 048
     Dates: start: 20190725, end: 20190806
  3. INGREZZA [Suspect]
     Active Substance: VALBENAZINE
     Dosage: 80 MILLIGRAM, QD
     Route: 048
     Dates: start: 20190807, end: 20210212
  4. QUETIAPINE [Concomitant]
     Active Substance: QUETIAPINE
     Indication: Schizophrenia
     Dosage: 800 MILLIGRAM
     Route: 048
     Dates: start: 20220112
  5. CAPLYTA [Concomitant]
     Active Substance: LUMATEPERONE
     Indication: Schizophrenia
     Dosage: 42 MILLIGRAM
     Route: 048
     Dates: start: 20220112

REACTIONS (1)
  - Paranoia [Not Recovered/Not Resolved]
